FAERS Safety Report 7604529-4 (Version None)
Quarter: 2011Q3

REPORT INFORMATION
  Report Type: 
  Country: None (occurrence: None)
  Receive Date: 20110712
  Receipt Date: 20110701
  Transmission Date: 20111222
  Serious: Yes (Hospitalization)
  Sender: FDA-Public Use
  Company Number: US-UCBSA-036461

PATIENT
  Age: 56 Year
  Sex: Female
  Weight: 55 kg

DRUGS (3)
  1. VIMPAT [Suspect]
     Dosage: PREVIOUS DOSE 100 MG BID.
  2. TRILEPTAL [Interacting]
     Indication: EPILEPSY
     Dosage: PREVIOUS DOSE 150 MG DAILY.
     Route: 048
     Dates: start: 20110101, end: 20110407
  3. KEPPRA [Interacting]
     Indication: EPILEPSY
     Dates: start: 20050101

REACTIONS (3)
  - TACHYCARDIA [None]
  - HYPERTENSION [None]
  - DRUG INTERACTION [None]
